FAERS Safety Report 13443862 (Version 1)
Quarter: 2017Q2

REPORT INFORMATION
  Report Type: Spontaneous
  Country: NL (occurrence: NL)
  Receive Date: 20170414
  Receipt Date: 20170414
  Transmission Date: 20170830
  Serious: Yes (Hospitalization)
  Sender: FDA-Public Use
  Company Number: NL-TEVA-757683ACC

PATIENT
  Age: 48 Year
  Sex: Female
  Weight: 70 kg

DRUGS (5)
  1. ESCITALOPRAM TABLET 20MG [Concomitant]
     Active Substance: ESCITALOPRAM OXALATE
     Dosage: 20 MILLIGRAM DAILY; ONCE DAILY 20MG
     Route: 048
  2. METHOTREXATE (METHOTREXATE SODIUM) [Suspect]
     Active Substance: METHOTREXATE SODIUM
     Indication: RHEUMATOID ARTHRITIS
     Dosage: ONCE WEEKLY 3-8 TABLETS (DOSE VARIED)
     Route: 048
     Dates: start: 20150107, end: 20170123
  3. FOLIUMZUUR [Concomitant]
     Active Substance: FOLIC ACID
     Dosage: ONCE WEEKLY TWO TABLETS
     Route: 048
  4. PLAQUENIL [Concomitant]
     Active Substance: HYDROXYCHLOROQUINE SULFATE
     Dosage: 200 MILLIGRAM DAILY; ONCE DAILY 200MG
     Route: 048
  5. ENBREL INJPDR FLACON 25MG+SOLVENS 1ML+TOEBEHOREN [Concomitant]
     Dosage: TWICE WEEKLY 25MG
     Route: 048

REACTIONS (1)
  - Tibia fracture [Recovering/Resolving]

NARRATIVE: CASE EVENT DATE: 20170118
